FAERS Safety Report 10985051 (Version 1)
Quarter: 2015Q1

REPORT INFORMATION
  Report Type: Spontaneous
  Country: US (occurrence: None)
  Receive Date: 20150313
  Receipt Date: 20150313
  Transmission Date: 20150721
  Serious: Yes (Other)
  Sender: FDA-Public Use
  Company Number: 1399165

PATIENT
  Age: 35 Year
  Sex: Female

DRUGS (1)
  1. XOLAIR [Suspect]
     Active Substance: OMALIZUMAB
     Indication: ASTHMA
     Dosage: 1 IN 2 WK
     Route: 058
     Dates: start: 20140505, end: 20140505

REACTIONS (2)
  - Hypersensitivity [None]
  - Infection [None]

NARRATIVE: CASE EVENT DATE: 20140506
